FAERS Safety Report 17082249 (Version 1)
Quarter: 2019Q4

REPORT INFORMATION
  Report Type: Spontaneous
  Country: IT (occurrence: IT)
  Receive Date: 20191127
  Receipt Date: 20191127
  Transmission Date: 20200122
  Serious: Yes (Other)
  Sender: FDA-Public Use
  Company Number: NVSC2019IT044384

PATIENT
  Age: 52 Year
  Sex: Male

DRUGS (1)
  1. VOLTFAST [Suspect]
     Active Substance: DICLOFENAC
     Indication: INFLAMMATION
     Dosage: 50 MG, TOTAL
     Route: 048
     Dates: start: 20190901, end: 20190901

REACTIONS (2)
  - Throat tightness [Recovering/Resolving]
  - Urticaria [Recovering/Resolving]

NARRATIVE: CASE EVENT DATE: 20190901
